FAERS Safety Report 23345649 (Version 1)
Quarter: 2023Q4

REPORT INFORMATION
  Report Type: Other
  Country: PE (occurrence: None)
  Receive Date: 20231228
  Receipt Date: 20231228
  Transmission Date: 20240109
  Serious: No
  Sender: FDA-Public Use
  Company Number: PE-ROCHE-3482609

PATIENT
  Sex: Female

DRUGS (1)
  1. OCREVUS [Suspect]
     Active Substance: OCRELIZUMAB
     Indication: Multiple sclerosis
     Dosage: DOSE AND FREQUENCY WERE NOT REPORTED
     Route: 065

REACTIONS (1)
  - COVID-19 [Unknown]
